FAERS Safety Report 8906565 (Version 1)
Quarter: 2012Q4

REPORT INFORMATION
  Report Type: 
  Country: US (occurrence: US)
  Receive Date: 20121114
  Receipt Date: 20121114
  Transmission Date: 20130627
  Serious: No
  Sender: FDA-Public Use
  Company Number: US-TEVA-367809USA

PATIENT
  Age: 64 None
  Sex: Female
  Weight: 30.42 kg

DRUGS (15)
  1. NUVIGIL [Suspect]
     Indication: HYPERSOMNIA
     Dosage: QAM
     Route: 048
     Dates: start: 201204
  2. MEDROL [Concomitant]
     Indication: RHEUMATOID ARTHRITIS
     Dosage: 4mg (1/2 tab BID)
     Route: 048
  3. LASIX [Concomitant]
     Indication: OEDEMA
     Dosage: QD
     Route: 048
  4. COUMADIN [Concomitant]
     Indication: THROMBOSIS
     Dosage: QD
     Route: 048
  5. TOPROL-XL [Concomitant]
     Indication: TACHYCARDIA
     Dosage: QD
     Route: 048
  6. SYNTHROID [Concomitant]
     Indication: THYROID NEOPLASM
     Dosage: QD
     Route: 048
  7. SYNTHROID [Concomitant]
     Dosage: QD
     Route: 048
  8. PHENERGAN [Concomitant]
     Indication: NAUSEA
     Dosage: PRN
     Route: 048
  9. MORPHINE [Concomitant]
     Indication: PAIN
     Dosage: PRN 2-3 tabs/day
     Route: 048
  10. PERCOCET [Concomitant]
     Indication: PAIN
     Dosage: PRN
     Route: 048
  11. PREVACID [Concomitant]
     Indication: GASTROOESOPHAGEAL REFLUX DISEASE
     Route: 048
  12. MULTIVITAMIN [Concomitant]
     Indication: VITAMIN SUPPLEMENTATION
     Dosage: QD
     Route: 048
  13. LANTUS [Concomitant]
     Indication: DIABETES MELLITUS
     Dosage: 9 units QHS
     Route: 058
  14. HUMALOG [Concomitant]
     Indication: DIABETES MELLITUS
     Dosage: sliding scale TID
     Route: 058
  15. PEN-VK [Concomitant]
     Indication: DENTAL CARE
     Dates: start: 201210

REACTIONS (7)
  - Malaise [Recovered/Resolved]
  - Nausea [Recovered/Resolved]
  - Vomiting [Recovered/Resolved]
  - Intestinal obstruction [Recovered/Resolved]
  - Subcutaneous abscess [Not Recovered/Not Resolved]
  - Weight decreased [Unknown]
  - Drug ineffective [Not Recovered/Not Resolved]
